FAERS Safety Report 7458220-8 (Version None)
Quarter: 2011Q2

REPORT INFORMATION
  Report Type: 
  Country: None (occurrence: None)
  Receive Date: 20110504
  Receipt Date: 20110503
  Transmission Date: 20111010
  Serious: Yes (Other)
  Sender: FDA-Public Use
  Company Number: US-PFIZER INC-2010055456

PATIENT
  Sex: Male
  Weight: 116 kg

DRUGS (10)
  1. NORVASC [Concomitant]
     Dosage: UNK
  2. GLUCOTROL [Concomitant]
     Dosage: UNK
  3. VICODIN [Concomitant]
     Dosage: UNK
  4. SUTENT [Suspect]
     Indication: METASTATIC RENAL CELL CARCINOMA
     Dosage: 50 MG, 1X/DAY, 4 WEEKS ON AND 2 WEEKS OFF
     Route: 048
     Dates: start: 20090226, end: 20100429
  5. PREDNISONE [Concomitant]
     Dosage: UNK
  6. LISINOPRIL [Concomitant]
     Dosage: UNK
  7. TENORMIN [Concomitant]
     Dosage: UNK
  8. WARFARIN [Concomitant]
     Dosage: UNK
  9. RABEPRAZOLE [Concomitant]
     Dosage: UNK
  10. ZOCOR [Concomitant]
     Dosage: UNK

REACTIONS (1)
  - PYODERMA GANGRENOSUM [None]
